FAERS Safety Report 24967995 (Version 1)
Quarter: 2025Q1

REPORT INFORMATION
  Report Type: Spontaneous
  Country: US (occurrence: US)
  Receive Date: 20250214
  Receipt Date: 20250214
  Transmission Date: 20250408
  Serious: No
  Sender: GLAXOSMITHKLINE
  Company Number: US-GSKCCFUS-Case-02215086_AE-121497

PATIENT
  Age: 52 Year
  Sex: Female

DRUGS (2)
  1. BENLYSTA [Suspect]
     Active Substance: BELIMUMAB
     Indication: Product used for unknown indication
     Dates: start: 202406
  2. BENADRYL [Concomitant]
     Active Substance: DIPHENHYDRAMINE HYDROCHLORIDE
     Indication: Product used for unknown indication

REACTIONS (8)
  - Injection site pain [Unknown]
  - Exposure via skin contact [Unknown]
  - Injection site swelling [Unknown]
  - Pruritus [Unknown]
  - Insomnia [Unknown]
  - Device use error [Unknown]
  - Accidental exposure to product [Unknown]
  - Extra dose administered [Unknown]

NARRATIVE: CASE EVENT DATE: 20240601
